FAERS Safety Report 11368812 (Version 2)
Quarter: 2015Q4

REPORT INFORMATION
  Report Type: Report from Study
  Country: BR (occurrence: BR)
  Receive Date: 20150812
  Receipt Date: 20151201
  Transmission Date: 20160304
  Serious: Yes (Hospitalization, Other)
  Sender: FDA-Public Use
  Company Number: BR-ROCHE-1445413

PATIENT
  Age: 49 Year
  Sex: Male
  Weight: 70 kg

DRUGS (9)
  1. XOLAIR [Suspect]
     Active Substance: OMALIZUMAB
     Dosage: 3 INJECTIONS EVERY 15  DAYS
     Route: 058
     Dates: start: 20140730
  2. BUDESONIDE. [Concomitant]
     Active Substance: BUDESONIDE
     Route: 065
  3. SPIRIVA [Concomitant]
     Active Substance: TIOTROPIUM BROMIDE MONOHYDRATE
  4. CLENIL (BECLOMETASONE DIPROPIONATE) [Concomitant]
     Active Substance: BECLOMETHASONE DIPROPIONATE
  5. ALENIA (BRAZIL) [Concomitant]
     Active Substance: BUDESONIDE\FORMOTEROL FUMARATE
     Route: 065
  6. MONTELAIR [Concomitant]
     Active Substance: MONTELUKAST SODIUM
     Route: 065
  7. ONBRIZE [Concomitant]
     Active Substance: INDACATEROL MALEATE
     Route: 065
  8. XOLAIR [Suspect]
     Active Substance: OMALIZUMAB
     Indication: ASTHMA
     Dosage: 3 INJECTIONS EVERY 15 DAYS
     Route: 058
     Dates: start: 20120901
  9. BAMIFIX [Concomitant]
     Active Substance: BAMIFYLLINE HYDROCHLORIDE
     Route: 065

REACTIONS (12)
  - Influenza [Recovered/Resolved]
  - Tremor [Recovered/Resolved]
  - Application site pain [Recovered/Resolved]
  - Oropharyngeal pain [Unknown]
  - Injection site haemorrhage [Recovered/Resolved]
  - Application site discolouration [Recovered/Resolved]
  - Drug administered at inappropriate site [Unknown]
  - Feeling of despair [Recovered/Resolved]
  - Fatigue [Recovered/Resolved]
  - Application site rash [Recovered/Resolved]
  - Enteritis infectious [Recovering/Resolving]
  - Osteoporosis [Recovering/Resolving]

NARRATIVE: CASE EVENT DATE: 2013
